FAERS Safety Report 15396540 (Version 1)
Quarter: 2018Q3

REPORT INFORMATION
  Report Type: Other
  Country: US (occurrence: US)
  Receive Date: 20180918
  Receipt Date: 20180918
  Transmission Date: 20181010
  Serious: No
  Sender: FDA-Public Use
  Company Number: US-LEADIANT BIOSCIENCES INC-2018STPI000084

PATIENT
  Sex: Male

DRUGS (7)
  1. LOMUSTINE. [Concomitant]
     Active Substance: LOMUSTINE
  2. LORAZEPAM. [Concomitant]
     Active Substance: LORAZEPAM
  3. MATULANE [Suspect]
     Active Substance: PROCARBAZINE HYDROCHLORIDE
     Indication: BRAIN NEOPLASM MALIGNANT
     Dosage: 150 MG ON DAYS 8 ?21
     Route: 048
     Dates: start: 20170927
  4. OMEPRAZOLE. [Concomitant]
     Active Substance: OMEPRAZOLE
  5. AVASTIN                            /00848101/ [Concomitant]
     Active Substance: SIMVASTATIN
  6. VINCRISTINE [Concomitant]
     Active Substance: VINCRISTINE
  7. MODAFINIL. [Concomitant]
     Active Substance: MODAFINIL

REACTIONS (1)
  - Hypersensitivity [Not Recovered/Not Resolved]
